FAERS Safety Report 9718657 (Version 1)
Quarter: 2013Q4

REPORT INFORMATION
  Report Type: Spontaneous
  Country: US (occurrence: US)
  Receive Date: 20131125
  Receipt Date: 20131125
  Transmission Date: 20140711
  Serious: No
  Sender: FDA-Public Use
  Company Number: US-VIVUS-2013V1000020

PATIENT
  Sex: Female
  Weight: 87.17 kg

DRUGS (10)
  1. QSYMIA 3.75MG/23MG [Suspect]
     Indication: WEIGHT DECREASED
     Dosage: DAILY DOSE: 1 CAPSULE,
     Route: 048
     Dates: start: 201212, end: 201212
  2. QSYMIA 7.5MG/46MG [Suspect]
     Indication: WEIGHT DECREASED
     Dosage: DAILY DOSE: 1 CAPSULE,
     Route: 048
     Dates: start: 201301
  3. TRAMADOL [Concomitant]
     Indication: PAIN
     Route: 048
  4. GABAPENTIN [Concomitant]
     Indication: PAIN
     Route: 048
  5. HYDROXYZINE [Concomitant]
     Indication: ANXIETY
     Route: 048
  6. ENALAPRIL [Concomitant]
     Indication: BLOOD PRESSURE
     Route: 048
  7. HCTZ [Concomitant]
     Indication: BLOOD PRESSURE
     Route: 048
  8. BUPROPION [Concomitant]
     Indication: BIPOLAR DISORDER
     Route: 048
  9. TRAZODONE [Concomitant]
     Indication: SLEEP DISORDER
     Route: 048
  10. RISPERIDONE [Concomitant]
     Indication: BIPOLAR DISORDER
     Route: 048

REACTIONS (6)
  - Increased appetite [Not Recovered/Not Resolved]
  - Hunger [Not Recovered/Not Resolved]
  - Food craving [Not Recovered/Not Resolved]
  - Weight increased [Not Recovered/Not Resolved]
  - Depression [Not Recovered/Not Resolved]
  - Dry mouth [Not Recovered/Not Resolved]
